FAERS Safety Report 6336648-7 (Version None)
Quarter: 2009Q3

REPORT INFORMATION
  Report Type: 
  Country: None (occurrence: None)
  Receive Date: 20090831
  Receipt Date: 20090831
  Transmission Date: 20100115
  Serious: Yes (Life-Threatening)
  Sender: FDA-Public Use
  Company Number: None

PATIENT
  Age: 31 Year
  Sex: Male
  Weight: 66 kg

DRUGS (2)
  1. OXYCODONE SR 10MG [Suspect]
     Indication: PAIN
     Dosage: 30MG Q12H PO
     Route: 048
  2. OXYCODONE IR 5MG [Suspect]
     Indication: PAIN
     Dosage: 15MG Q4H PRN PAIN PO
     Route: 048

REACTIONS (3)
  - LETHARGY [None]
  - SOMNOLENCE [None]
  - UNRESPONSIVE TO STIMULI [None]
